FAERS Safety Report 6678015-2 (Version None)
Quarter: 2010Q2

REPORT INFORMATION
  Report Type: 
  Country: None (occurrence: None)
  Receive Date: 20100412
  Receipt Date: 20100309
  Transmission Date: 20101027
  Serious: No
  Sender: FDA-Public Use
  Company Number: US-BAYER-201013000BCC

PATIENT
  Age: 58 Year
  Sex: Female
  Weight: 79 kg

DRUGS (1)
  1. ALEVE (CAPLET) [Suspect]
     Indication: BACK PAIN
     Dosage: TOOK 3 TABLETS AT A TIME
     Route: 048

REACTIONS (3)
  - ABDOMINAL DISCOMFORT [None]
  - DYSPEPSIA [None]
  - NAUSEA [None]
